FAERS Safety Report 4719201-8 (Version None)
Quarter: 2005Q3

REPORT INFORMATION
  Report Type: 
  Country: None (occurrence: None)
  Receive Date: 20050720
  Receipt Date: 20050704
  Transmission Date: 20060218
  Serious: Yes (Hospitalization)
  Sender: FDA-Public Use
  Company Number: MAG-2005-0000375

PATIENT
  Sex: Male

DRUGS (2)
  1. THEOPHYLLINE [Suspect]
     Dosage: ORAL
     Route: 048
  2. PRANLUKAST (PRANLUKAST) [Concomitant]

REACTIONS (1)
  - NEPHROTIC SYNDROME [None]
